FAERS Safety Report 4424787-7 (Version None)
Quarter: 2004Q3

REPORT INFORMATION
  Report Type: 
  Country: None (occurrence: None)
  Receive Date: 20040719
  Receipt Date: 20040329
  Transmission Date: 20050211
  Serious: Yes (Hospitalization)
  Sender: FDA-Public Use
  Company Number: 192520

PATIENT
  Age: 25 Year
  Sex: Female
  Weight: 60.3284 kg

DRUGS (2)
  1. AVONEX [Suspect]
     Indication: MULTIPLE SCLEROSIS
     Dosage: 30 MCG QW IM
     Route: 030
  2. SEROQUEL [Concomitant]

REACTIONS (7)
  - DEPRESSION [None]
  - HEART RATE INCREASED [None]
  - PHARYNGOLARYNGEAL PAIN [None]
  - RESPIRATORY RATE DECREASED [None]
  - SENSATION OF BLOCK IN EAR [None]
  - SUICIDAL IDEATION [None]
  - SUICIDE ATTEMPT [None]
